FAERS Safety Report 9392705 (Version 1)
Quarter: 2013Q3

REPORT INFORMATION
  Report Type: Spontaneous
  Country: US (occurrence: US)
  Receive Date: 20130710
  Receipt Date: 20130710
  Transmission Date: 20140515
  Serious: No
  Sender: FDA-Public Use
  Company Number: US-BAYER-2013-083285

PATIENT
  Sex: Female

DRUGS (1)
  1. MIRENA [Suspect]
     Dosage: 20 MCG/24HR, CONT
     Route: 015
     Dates: start: 20121117

REACTIONS (12)
  - Menstruation irregular [None]
  - Polycystic ovaries [None]
  - Polymenorrhoea [None]
  - Menorrhagia [None]
  - Nausea [None]
  - Dizziness [None]
  - Headache [None]
  - Migraine [None]
  - Furuncle [None]
  - Asthenia [None]
  - Abdominal pain [None]
  - Dizziness [None]
